FAERS Safety Report 23494643 (Version 1)
Quarter: 2024Q1

REPORT INFORMATION
  Report Type: Spontaneous
  Country: None (occurrence: US)
  Receive Date: 20240207
  Receipt Date: 20240207
  Transmission Date: 20240409
  Serious: Yes (Other)
  Sender: FDA-Public Use
  Company Number: US-Medline Industries, LP-2152804

PATIENT

DRUGS (1)
  1. READYPREP CHG [Suspect]
     Active Substance: CHLORHEXIDINE GLUCONATE
     Route: 061
     Dates: start: 20231025, end: 20231026

REACTIONS (1)
  - Skin irritation [Recovered/Resolved]
